FAERS Safety Report 4712212-8 (Version None)
Quarter: 2005Q3

REPORT INFORMATION
  Report Type: 
  Country: None (occurrence: None)
  Receive Date: 20050712
  Receipt Date: 20050705
  Transmission Date: 20060218
  Serious: Yes (Hospitalization)
  Sender: FDA-Public Use
  Company Number: FR-SANOFI-SYNTHELABO-F01200501209

PATIENT
  Sex: Male
  Weight: 80 kg

DRUGS (4)
  1. OXALIPLATIN [Suspect]
     Dosage: UNK
     Route: 042
     Dates: start: 20050620, end: 20050620
  2. FLUOROURACIL [Suspect]
     Indication: OESOPHAGEAL CARCINOMA
     Dosage: UNK
     Route: 042
     Dates: start: 20050620, end: 20050621
  3. LEUCOVORIN [Suspect]
     Indication: OESOPHAGEAL CARCINOMA
     Dosage: UNK
     Route: 042
     Dates: start: 20050620, end: 20050621
  4. RADIOTHERAPY [Concomitant]
     Dosage: TOTAL DOSE OF FRACTION ADMINISTERED BEFORE SAE: 20
     Route: 050
     Dates: start: 20050620, end: 20050701

REACTIONS (3)
  - ATRIAL FIBRILLATION [None]
  - FATIGUE [None]
  - MALAISE [None]
